FAERS Safety Report 8760820 (Version 1)
Quarter: 2012Q4

REPORT INFORMATION
  Report Type: 
  Country: AR (occurrence: AR)
  Receive Date: 20120830
  Receipt Date: 20120830
  Transmission Date: 20130627
  Serious: Yes (Other)
  Sender: FDA-Public Use
  Company Number: AR-UCBSA-064433

PATIENT
  Sex: Male

DRUGS (3)
  1. KEPPRA [Suspect]
     Indication: EPILEPSY
     Dosage: DAILY DOSE: 1500 MG
     Route: 064
     Dates: start: 201108, end: 201204
  2. LAMICTAL [Suspect]
     Indication: EPILEPSY
     Dosage: DAILY DOSE: 200 MG
     Route: 064
  3. CLOBAZAM [Suspect]
     Indication: EPILEPSY
     Dosage: DAILY DOSE: 350 MG
     Route: 064

REACTIONS (3)
  - Premature baby [Unknown]
  - Foetal exposure during pregnancy [Recovered/Resolved]
  - Exposure during breast feeding [Recovered/Resolved]
